FAERS Safety Report 9182127 (Version 2)
Quarter: 2013Q3

REPORT INFORMATION
  Report Type: Spontaneous
  Country: US (occurrence: None)
  Receive Date: 20120626
  Receipt Date: 20130724
  Transmission Date: 20140515
  Serious: Yes (Other)
  Sender: FDA-Public Use
  Company Number: PHEH2012US007764

PATIENT
  Age: 60 Year
  Sex: Female

DRUGS (10)
  1. DIOVAN [Suspect]
  2. DIOVAN [Suspect]
  3. ADVAIR (FLUTICASONE PROPIONATE, SALMETEROL XINAFOATE) [Concomitant]
  4. PRO-AIR (PROCATEROL HYDROCHLORIDE) (PROCATEROL HYDROCHLORIDE) PRILOSEC (OMEPRAZOLE) [Concomitant]
  5. FIBRE, DIETARY (FIBRE, DIETARY) [Concomitant]
  6. LORATIDINE [Concomitant]
  7. CRESTOR (ROSUVASTATIN CALCIUM) [Concomitant]
  8. IBUPROFEN (IBUPROFEN) [Concomitant]
  9. ASPIRIN (ACETYLSALICYLIC ACID) [Concomitant]
  10. PRILOSEC (OMEPRAZOLE) [Concomitant]

REACTIONS (6)
  - Blood pressure increased [None]
  - Arthritis [None]
  - Arthropathy [None]
  - Fungal skin infection [None]
  - Throat irritation [None]
  - Sinusitis [None]
